FAERS Safety Report 8832106 (Version 1)
Quarter: 2012Q4

REPORT INFORMATION
  Report Type: Report from Study
  Country: GB (occurrence: GB)
  Receive Date: 20121009
  Receipt Date: 20121009
  Transmission Date: 20130627
  Serious: Yes (Death)
  Sender: FDA-Public Use
  Company Number: GB-JNJFOC-20121003627

PATIENT
  Age: 73 Year

DRUGS (3)
  1. REMICADE [Suspect]
     Indication: RHEUMATOID ARTHRITIS
     Route: 042
     Dates: start: 20021215, end: 20031201
  2. METHOTREXATE [Concomitant]
  3. STEROIDS NOS [Concomitant]

REACTIONS (1)
  - Bronchial carcinoma [Fatal]
